FAERS Safety Report 5715687-0 (Version None)
Quarter: 2008Q2

REPORT INFORMATION
  Report Type: 
  Country: None (occurrence: None)
  Receive Date: 20080422
  Receipt Date: 20080415
  Transmission Date: 20081010
  Serious: Yes (Hospitalization)
  Sender: FDA-Public Use
  Company Number: 2008SP007047

PATIENT
  Age: 64 Year
  Sex: Female
  Weight: 62.28 kg

DRUGS (2)
  1. TEMODAR [Suspect]
     Indication: GLIOBLASTOMA MULTIFORME
     Dosage: 75 MG/M2;QD; : 150 MG/M2;QD;
     Dates: start: 20080307, end: 20080403
  2. TEMODAR [Suspect]
     Indication: GLIOBLASTOMA MULTIFORME
     Dosage: 75 MG/M2;QD; : 150 MG/M2;QD;
     Dates: start: 20071126

REACTIONS (2)
  - PELVIC FLUID COLLECTION [None]
  - PERIRECTAL ABSCESS [None]
